FAERS Safety Report 4728250-5 (Version None)
Quarter: 2005Q3

REPORT INFORMATION
  Report Type: 
  Country: None (occurrence: None)
  Receive Date: 20050727
  Receipt Date: 20050715
  Transmission Date: 20060218
  Serious: Yes (Other)
  Sender: FDA-Public Use
  Company Number: HQWYE715927JUN05

PATIENT
  Age: 65 Year
  Sex: Male

DRUGS (3)
  1. TIGECYCLINE          (TIGECYCLINE ) [Suspect]
     Indication: PNEUMONIA
     Dosage: 100 MG LOAD THEN 50 MG EVERY 12 HOURS
     Route: 042
     Dates: start: 20050623, end: 20050623
  2. CEFTRIAXONE [Concomitant]
  3. NITROXOLINE                (NITROXOLINE) [Concomitant]

REACTIONS (16)
  - ASTHENIA [None]
  - BAND NEUTROPHIL COUNT INCREASED [None]
  - CHILLS [None]
  - DYSPNOEA [None]
  - HAEMOGLOBIN DECREASED [None]
  - HYPERHIDROSIS [None]
  - HYPERTENSION [None]
  - INFUSION RELATED REACTION [None]
  - NAUSEA [None]
  - PAIN [None]
  - PALPITATIONS [None]
  - PLATELET COUNT INCREASED [None]
  - PYREXIA [None]
  - TACHYCARDIA [None]
  - TACHYPNOEA [None]
  - VOMITING [None]
